FAERS Safety Report 16487661 (Version 1)
Quarter: 2019Q3

REPORT INFORMATION
  Report Type: Spontaneous
  Country: US (occurrence: US)
  Receive Date: 20190626
  Receipt Date: 20190626
  Transmission Date: 20191004
  Serious: No
  Sender: FDA-Public Use
  Company Number: None

PATIENT
  Age: 6 Year
  Sex: Female

DRUGS (4)
  1. HUMATROPE [Suspect]
     Active Substance: SOMATROPIN
     Indication: BODY HEIGHT BELOW NORMAL
     Route: 058
     Dates: start: 20180322
  2. CLONAZEP ODT [Concomitant]
  3. GUANFACINE. [Concomitant]
     Active Substance: GUANFACINE
  4. CYPROHEPTAD [Concomitant]

REACTIONS (1)
  - Injection site pain [None]

NARRATIVE: CASE EVENT DATE: 20190523
